FAERS Safety Report 5062355-7 (Version None)
Quarter: 2006Q3

REPORT INFORMATION
  Report Type: 
  Country: None (occurrence: None)
  Receive Date: 20060721
  Receipt Date: 20060705
  Transmission Date: 20061208
  Serious: Yes (Hospitalization)
  Sender: FDA-Public Use
  Company Number: DSA_28373_2006

PATIENT
  Age: 41 Year
  Sex: Female

DRUGS (2)
  1. TAVOR /00273201/ [Suspect]
     Dosage: 40 MG ONCE PO
     Route: 048
     Dates: start: 20060619, end: 20060619
  2. ZOPICLONE [Suspect]
     Dosage: 300 MG ONCE PO
     Route: 048
     Dates: start: 20060619, end: 20060619

REACTIONS (5)
  - AGITATION [None]
  - FATIGUE [None]
  - HYPERVENTILATION [None]
  - MULTIPLE DRUG OVERDOSE INTENTIONAL [None]
  - SUICIDE ATTEMPT [None]
